FAERS Safety Report 8242784-0 (Version None)
Quarter: 2012Q1

REPORT INFORMATION
  Report Type: 
  Country: None (occurrence: None)
  Receive Date: 20120329
  Receipt Date: 20120319
  Transmission Date: 20120608
  Serious: Yes (Hospitalization)
  Sender: FDA-Public Use
  Company Number: FR-SANOFI-AVENTIS-2012SA018544

PATIENT
  Age: 42 Year
  Sex: Female

DRUGS (15)
  1. RIFADIN [Suspect]
     Indication: STAPHYLOCOCCAL INFECTION
     Route: 048
     Dates: start: 20111230, end: 20120101
  2. XYZAL [Concomitant]
  3. LORAZEPAM [Concomitant]
  4. ARIXTRA [Concomitant]
  5. DAPTOMYCIN [Concomitant]
     Indication: INFECTION
     Route: 042
     Dates: start: 20111228
  6. PYOSTACINE [Concomitant]
  7. FLOLAN [Concomitant]
     Indication: PULMONARY ARTERIAL HYPERTENSION
     Dosage: DOSE: 22NG/KG/MN
  8. PENTOXIFYLLINE [Concomitant]
  9. ALDACTONE [Concomitant]
  10. SPIRIVA [Concomitant]
  11. SILDENAFIL CITRATE [Concomitant]
     Indication: PULMONARY ARTERIAL HYPERTENSION
  12. RIFADIN [Suspect]
     Route: 048
     Dates: start: 20120103, end: 20120103
  13. BACTROBAN [Concomitant]
     Indication: INFECTION
     Route: 003
     Dates: start: 20111230, end: 20120103
  14. TRACLEER [Concomitant]
     Indication: PULMONARY ARTERIAL HYPERTENSION
  15. LASIX [Concomitant]

REACTIONS (2)
  - DYSPNOEA [None]
  - RESPIRATORY DISTRESS [None]
